FAERS Safety Report 8623348-3 (Version None)
Quarter: 2012Q3

REPORT INFORMATION
  Report Type: 
  Country: None (occurrence: None)
  Receive Date: 20120827
  Receipt Date: 20120821
  Transmission Date: 20120928
  Serious: Yes (Hospitalization)
  Sender: FDA-Public Use
  Company Number: US-JNJFOC-20120407310

PATIENT
  Sex: Male
  Weight: 62.14 kg

DRUGS (24)
  1. CALCIUM CARBONATE [Concomitant]
  2. ATENOLOL [Concomitant]
  3. MIRALAX [Concomitant]
  4. IMMUNE GLOBULIN NOS [Concomitant]
     Route: 042
     Dates: start: 20080808
  5. NEXIUM [Concomitant]
  6. PULMICORT [Concomitant]
  7. XOPENEX [Concomitant]
  8. COENZYME Q10 [Concomitant]
  9. TYLENOL [Concomitant]
  10. E VITAMIN [Concomitant]
  11. ZOFRAN [Concomitant]
  12. SELENIUM [Concomitant]
  13. ANTIBIOTICS [Concomitant]
     Indication: INFLAMMATORY BOWEL DISEASE
  14. BENADRYL [Concomitant]
  15. PROVIGIL [Concomitant]
  16. NALTREXONE HYDROCHLORIDE [Concomitant]
  17. LIPOIC ACID [Concomitant]
  18. MESALAMINE [Concomitant]
     Route: 048
  19. ASCORBIC ACID [Concomitant]
  20. REMICADE [Suspect]
     Indication: INFLAMMATORY BOWEL DISEASE
     Route: 042
     Dates: start: 20050807, end: 20100507
  21. MULTI-VITAMINS [Concomitant]
  22. DULCOLAX [Concomitant]
  23. RIBOFLAVIN CAP [Concomitant]
  24. NEURONTIN [Concomitant]

REACTIONS (1)
  - LARGE INTESTINAL OBSTRUCTION [None]
